FAERS Safety Report 4709482-9 (Version None)
Quarter: 2005Q3

REPORT INFORMATION
  Report Type: 
  Country: None (occurrence: None)
  Receive Date: 20050705
  Receipt Date: 20050621
  Transmission Date: 20060218
  Serious: Yes (Death)
  Sender: FDA-Public Use
  Company Number: 012

PATIENT
  Sex: Male
  Weight: 77.5651 kg

DRUGS (1)
  1. FAZACLO ODT [Suspect]
     Indication: SCHIZOPHRENIA
     Dosage: 650 MG PO PER DAY
     Route: 048
     Dates: start: 20050101, end: 20050501

REACTIONS (1)
  - FEELING ABNORMAL [None]
